FAERS Safety Report 8113128-X (Version None)
Quarter: 2012Q1

REPORT INFORMATION
  Report Type: 
  Country: None (occurrence: None)
  Receive Date: 20120203
  Receipt Date: 20120123
  Transmission Date: 20120608
  Serious: Yes (Other)
  Sender: FDA-Public Use
  Company Number: US-ELI_LILLY_AND_COMPANY-US201201007460

PATIENT
  Sex: Female

DRUGS (8)
  1. FUROSEMIDE [Concomitant]
     Dosage: 80 MG, QD
  2. ADCIRCA [Suspect]
     Indication: PULMONARY ARTERIAL HYPERTENSION
     Dosage: 20 MG, QD
     Dates: start: 20111101, end: 20111111
  3. COUMADIN [Concomitant]
     Dosage: 3 MG, UNK
  4. POTASSIUM CHLORIDE [Concomitant]
     Dosage: 20 MEQ, UNK
  5. AVAPRO [Concomitant]
  6. METOPROLOL [Concomitant]
     Dosage: 100 MG, UNK
  7. CARDIZEM CD [Concomitant]
     Dosage: 120 MG, UNK
  8. ALLOPURINOL [Concomitant]
     Dosage: 100 MG, UNK

REACTIONS (5)
  - ATRIAL FIBRILLATION [None]
  - GASTROOESOPHAGEAL REFLUX DISEASE [None]
  - PALPITATIONS [None]
  - CHEST DISCOMFORT [None]
  - ABDOMINAL DISCOMFORT [None]
